FAERS Safety Report 8619314-4 (Version None)
Quarter: 2012Q3

REPORT INFORMATION
  Report Type: 
  Country: None (occurrence: None)
  Receive Date: 20120824
  Receipt Date: 20120816
  Transmission Date: 20120928
  Serious: Yes (Hospitalization)
  Sender: FDA-Public Use
  Company Number: US-ELI_LILLY_AND_COMPANY-US201204009937

PATIENT
  Sex: Male
  Weight: 70.658 kg

DRUGS (6)
  1. HUMATROPE [Suspect]
     Dosage: 0.7 MG, QD
     Route: 058
     Dates: start: 20120426
  2. VITAMIN D [Concomitant]
     Dosage: UNK, UNKNOWN
  3. CALTRATE                           /00944201/ [Concomitant]
     Dosage: UNK, UNKNOWN
  4. HUMATROPE [Suspect]
     Indication: HYPOPITUITARISM
     Dosage: 0.7 MG, QD
     Route: 058
     Dates: start: 20050107, end: 20120414
  5. CORTEF [Concomitant]
     Dosage: UNK, UNKNOWN
  6. CYANOCOBALAMIN [Concomitant]
     Dosage: UNK, UNKNOWN

REACTIONS (4)
  - INCORRECT DOSE ADMINISTERED [None]
  - GASTROENTERITIS VIRAL [None]
  - DRUG DOSE OMISSION [None]
  - OESOPHAGITIS [None]
